FAERS Safety Report 9672498 (Version 2)
Quarter: 2013Q4

REPORT INFORMATION
  Report Type: Spontaneous
  Country: GB (occurrence: GB)
  Receive Date: 20131106
  Receipt Date: 20131219
  Transmission Date: 20140711
  Serious: Yes (Death)
  Sender: FDA-Public Use
  Company Number: GB-BAXTER-2013BAX042999

PATIENT
  Age: 86 Year
  Sex: Female

DRUGS (11)
  1. METRONIDAZOLE 500 MG / 100 ML INTRAVENOUS INFUSION [Suspect]
     Indication: LIVER ABSCESS
     Route: 065
     Dates: start: 20131025, end: 20131025
  2. PIPERACILIN COMP [Suspect]
     Indication: LIVER ABSCESS
     Route: 042
     Dates: start: 20131018, end: 20131025
  3. PIPERACILIN COMP [Suspect]
     Indication: SEPSIS
  4. TAZOBACTUM [Concomitant]
     Indication: LIVER ABSCESS
     Route: 042
     Dates: start: 20131018, end: 20131025
  5. TAZOBACTUM [Concomitant]
     Indication: SEPSIS
  6. MAGNESIUM GLYCEROPHOSPHATE [Concomitant]
     Indication: BLOOD MAGNESIUM DECREASED
     Route: 048
     Dates: start: 20131018, end: 20131025
  7. MAGNESIUM GLYCEROPHOSPHATE [Concomitant]
     Indication: SEPSIS
  8. LALTANOPROST [Concomitant]
     Indication: GLAUCOMA
     Route: 061
     Dates: start: 20131018, end: 20131025
  9. LALTANOPROST [Concomitant]
     Indication: SEPSIS
  10. BRINZOLAMIDE [Concomitant]
     Indication: GLAUCOMA
     Route: 061
  11. BRINZOLAMIDE [Concomitant]
     Indication: SEPSIS

REACTIONS (1)
  - Anaphylactic reaction [Fatal]
